FAERS Safety Report 9808315 (Version 1)
Quarter: 2014Q1

REPORT INFORMATION
  Report Type: Spontaneous
  Country: FR (occurrence: FR)
  Receive Date: 20140110
  Receipt Date: 20140110
  Transmission Date: 20141002
  Serious: Yes (Hospitalization, Other)
  Sender: FDA-Public Use
  Company Number: FR-009507513-1401FRA000500

PATIENT
  Age: 66 Year
  Sex: Female

DRUGS (8)
  1. NORSET [Suspect]
     Indication: PRODUCT USED FOR UNKNOWN INDICATION
     Dosage: 7.5 MG, QD
     Route: 048
     Dates: start: 20131130, end: 20131203
  2. PERFALGAN [Suspect]
     Indication: HEADACHE
     Dosage: 1 G, QID
     Route: 042
     Dates: start: 20131129, end: 20131202
  3. PERFALGAN [Suspect]
     Indication: DYSPHAGIA
  4. ACETAMINOPHEN [Suspect]
     Indication: PRODUCT USED FOR UNKNOWN INDICATION
     Dosage: 2250 MG, TID
     Route: 048
     Dates: start: 20131202, end: 20131203
  5. ACUPAN [Suspect]
     Indication: PRODUCT USED FOR UNKNOWN INDICATION
     Dosage: UNK
     Route: 042
     Dates: start: 20131129, end: 20131129
  6. LEXOMIL [Suspect]
     Indication: PRODUCT USED FOR UNKNOWN INDICATION
     Dosage: 1.5 DF, TID
     Route: 048
     Dates: start: 20131130, end: 20131203
  7. IMOVANE [Suspect]
     Indication: PRODUCT USED FOR UNKNOWN INDICATION
     Dosage: 1 DF, QD
     Route: 048
     Dates: start: 20131202, end: 20131203
  8. ZYPREXA [Suspect]
     Indication: PRODUCT USED FOR UNKNOWN INDICATION
     Dosage: UNK
     Route: 048
     Dates: start: 20131129, end: 20131203

REACTIONS (2)
  - Hepatocellular injury [Recovering/Resolving]
  - Hepatic failure [Recovered/Resolved]
